FAERS Safety Report 15310757 (Version 1)
Quarter: 2018Q3

REPORT INFORMATION
  Report Type: Report from Study
  Country: ZA (occurrence: ZA)
  Receive Date: 20180823
  Receipt Date: 20180823
  Transmission Date: 20181010
  Serious: Yes (Other)
  Sender: FDA-Public Use
  Company Number: ZA-PFIZER INC-2018339546

PATIENT
  Age: 77 Year
  Sex: Female

DRUGS (1)
  1. ERAXIS [Suspect]
     Active Substance: ANIDULAFUNGIN
     Dosage: 200 MG, LOADING DOSE
     Dates: start: 20180727

REACTIONS (3)
  - Neutrophil count abnormal [Unknown]
  - Escherichia infection [Unknown]
  - Lung infection [Unknown]

NARRATIVE: CASE EVENT DATE: 20180807
